FAERS Safety Report 6273481-9 (Version None)
Quarter: 2009Q3

REPORT INFORMATION
  Report Type: 
  Country: None (occurrence: None)
  Receive Date: 20090716
  Receipt Date: 20090706
  Transmission Date: 20100115
  Serious: Yes (Hospitalization)
  Sender: FDA-Public Use
  Company Number: 2009-198522-NL

PATIENT
  Age: 72 Year
  Sex: Female

DRUGS (1)
  1. MIRTAZAPINE [Suspect]
     Indication: DEPRESSION
     Dosage: 30 MG

REACTIONS (4)
  - BRONCHITIS [None]
  - CYSTITIS [None]
  - HYPOKALAEMIA [None]
  - HYPONATRAEMIA [None]
